FAERS Safety Report 24035768 (Version 2)
Quarter: 2024Q4

REPORT INFORMATION
  Report Type: Spontaneous
  Country: CA (occurrence: CA)
  Receive Date: 20240701
  Receipt Date: 20241018
  Transmission Date: 20250115
  Serious: Yes (Death, Other)
  Sender: TEVA
  Company Number: CA-TEVA-VS-3213045

PATIENT
  Age: 58 Year
  Sex: Male

DRUGS (17)
  1. CITALOPRAM [Suspect]
     Active Substance: CITALOPRAM
     Indication: Product used for unknown indication
     Route: 048
  2. CITALOPRAM [Suspect]
     Active Substance: CITALOPRAM
     Indication: Product used for unknown indication
     Route: 048
  3. SERTRALINE [Suspect]
     Active Substance: SERTRALINE HYDROCHLORIDE
     Indication: Compulsions
     Route: 065
  4. SERTRALINE [Suspect]
     Active Substance: SERTRALINE HYDROCHLORIDE
     Indication: Compulsions
     Route: 065
  5. TRAZODONE [Suspect]
     Active Substance: TRAZODONE HYDROCHLORIDE
     Indication: Product used for unknown indication
     Route: 065
  6. VALPROIC ACID [Suspect]
     Active Substance: VALPROIC ACID
     Indication: Product used for unknown indication
     Route: 065
  7. ESCITALOPRAM [Suspect]
     Active Substance: ESCITALOPRAM OXALATE
     Indication: Product used for unknown indication
     Route: 065
  8. ESCITALOPRAM [Suspect]
     Active Substance: ESCITALOPRAM OXALATE
     Indication: Product used for unknown indication
     Route: 065
  9. HALOPERIDOL [Suspect]
     Active Substance: HALOPERIDOL
     Indication: Product used for unknown indication
     Route: 065
  10. QUETIAPINE [Suspect]
     Active Substance: QUETIAPINE
     Indication: Product used for unknown indication
     Dosage: QUETIAPINE FUMARATE
     Route: 065
  11. OLANZAPINE [Suspect]
     Active Substance: OLANZAPINE
     Indication: Product used for unknown indication
     Route: 048
  12. PAROXETINE [Suspect]
     Active Substance: PAROXETINE
     Indication: Product used for unknown indication
     Route: 065
  13. PAROXETINE [Suspect]
     Active Substance: PAROXETINE
     Indication: Product used for unknown indication
     Route: 065
  14. PAROXETINE [Suspect]
     Active Substance: PAROXETINE
     Indication: Product used for unknown indication
     Route: 065
  15. CLOMIPRAMINE [Suspect]
     Active Substance: CLOMIPRAMINE
     Indication: Obsessive-compulsive disorder
     Route: 048
  16. CLOMIPRAMINE [Suspect]
     Active Substance: CLOMIPRAMINE
     Indication: Obsessive-compulsive disorder
     Route: 048
  17. CLOMIPRAMINE [Suspect]
     Active Substance: CLOMIPRAMINE
     Indication: Obsessive-compulsive disorder
     Route: 065

REACTIONS (13)
  - Abdominal pain upper [Fatal]
  - Confusional state [Fatal]
  - Hyperhidrosis [Fatal]
  - Parkinsonism [Fatal]
  - Resting tremor [Unknown]
  - Drug ineffective [Fatal]
  - Drug intolerance [Fatal]
  - Bradykinesia [Unknown]
  - Cogwheel rigidity [Unknown]
  - Death [Fatal]
  - Myalgia [Fatal]
  - Patient elopement [Fatal]
  - Sleep disorder [Fatal]
